FAERS Safety Report 23626133 (Version 1)
Quarter: 2024Q1

REPORT INFORMATION
  Report Type: Spontaneous
  Country: GB (occurrence: None)
  Receive Date: 20240313
  Receipt Date: 20240313
  Transmission Date: 20240409
  Serious: Yes (Other)
  Sender: FDA-Public Use
  Company Number: None

PATIENT
  Age: 75 Year
  Sex: Female

DRUGS (21)
  1. METHOTREXATE [Suspect]
     Active Substance: METHOTREXATE
     Indication: Product used for unknown indication
  2. CALCIUM CARBONATE\CHOLECALCIFEROL [Concomitant]
     Active Substance: CALCIUM CARBONATE\CHOLECALCIFEROL
  3. MORPHINE SULFATE [Concomitant]
     Active Substance: MORPHINE SULFATE
     Indication: Pain
     Dosage: 1.25-2.5ML EVERY 4-6 HRS FOR BREAKTHROUGH PAIN 100 ML?10MG/5ML ORAL SOLUTION
  4. ALENDRONIC ACID [Concomitant]
     Active Substance: ALENDRONIC ACID
     Dosage: ON WEDNESDAY
  5. BISOPROLOL [Concomitant]
     Active Substance: BISOPROLOL\BISOPROLOL FUMARATE
     Dosage: EACH MORNING
  6. FOLIC ACID [Concomitant]
     Active Substance: FOLIC ACID
     Dates: end: 202303
  7. CHOLESTYRAMINE [Concomitant]
     Active Substance: CHOLESTYRAMINE
  8. CODEINE [Concomitant]
     Active Substance: CODEINE
     Dosage: ONE OR TWO TO BE TAKEN EVERY FOUR HOURS WHEN NECESSARY
  9. CARBOXYMETHYLCELLULOSE [Concomitant]
     Active Substance: CARBOXYMETHYLCELLULOSE
     Dosage: EACH EYE
  10. LEVOTHYROXINE [Concomitant]
     Active Substance: LEVOTHYROXINE\LEVOTHYROXINE SODIUM
     Dosage: ON ALTERNATE DAYS
  11. LEVOTHYROXINE [Concomitant]
     Active Substance: LEVOTHYROXINE\LEVOTHYROXINE SODIUM
     Dosage: ON ALTERNATE DAYS
  12. ACETAMINOPHEN [Concomitant]
     Active Substance: ACETAMINOPHEN
     Dosage: PATIENT STATES TAKING PRN
  13. LOSARTAN [Concomitant]
     Active Substance: LOSARTAN
     Dates: end: 202306
  14. CHLORPHENIRAMINE MALEATE [Concomitant]
     Active Substance: CHLORPHENIRAMINE MALEATE
  15. FELODIPINE [Concomitant]
     Active Substance: FELODIPINE
     Dosage: EACH MORNING
  16. LORATADINE [Concomitant]
     Active Substance: LORATADINE
  17. PREDNISONE [Concomitant]
     Active Substance: PREDNISONE
     Dosage: COURSE FINISHED
  18. METOCLOPRAMIDE [Concomitant]
     Active Substance: METOCLOPRAMIDE
     Dosage: PATIENT STATES TAKING PRN
  19. LANSOPRAZOLE [Concomitant]
     Active Substance: LANSOPRAZOLE
  20. NUTRITIONAL SUPPLEMENT (ENSURE PLUS) [Concomitant]
     Dosage: MILKSHAKE STYLE LIQUID
  21. NON-MEDICINAL PRODUCT (EPIMAX) [Concomitant]

REACTIONS (1)
  - Non-alcoholic steatohepatitis [Unknown]
